FAERS Safety Report 7744240-2 (Version None)
Quarter: 2011Q3

REPORT INFORMATION
  Report Type: 
  Country: None (occurrence: None)
  Receive Date: 20110819
  Receipt Date: 20110701
  Transmission Date: 20111222
  Serious: No
  Sender: FDA-Public Use
  Company Number: 036476

PATIENT
  Sex: Male

DRUGS (4)
  1. LACOSAMIDE [Suspect]
     Dosage: (100 MG BID, 50MG BID)
  2. LAMICTAL [Concomitant]
  3. TRILEPTAL [Concomitant]
  4. KEPPRA [Concomitant]

REACTIONS (1)
  - ATAXIA [None]
